FAERS Safety Report 21965135 (Version 1)
Quarter: 2023Q1

REPORT INFORMATION
  Report Type: Spontaneous
  Country: US (occurrence: US)
  Receive Date: 20230208
  Receipt Date: 20230208
  Transmission Date: 20230417
  Serious: Yes (Hospitalization)
  Sender: FDA-Public Use
  Company Number: US-ENDO PHARMACEUTICALS INC-2023-000451

PATIENT
  Age: 56 Year
  Sex: Female

DRUGS (3)
  1. LAMOTRIGINE [Suspect]
     Active Substance: LAMOTRIGINE
     Indication: Mood swings
     Dosage: UNK UNKNOWN, UNKNOWN
     Route: 065
  2. DULOXETINE [Concomitant]
     Active Substance: DULOXETINE
     Indication: Major depression
     Dosage: UNK UNKNOWN, UNKNOWN
     Route: 065
  3. DULOXETINE [Concomitant]
     Active Substance: DULOXETINE
     Indication: Post-traumatic stress disorder

REACTIONS (4)
  - Persistent genital arousal disorder [Recovered/Resolved]
  - Psychotic disorder [Unknown]
  - Suicidal ideation [Unknown]
  - Off label use [Recovered/Resolved]
